FAERS Safety Report 24097924 (Version 1)
Quarter: 2024Q3

REPORT INFORMATION
  Report Type: Report from Study
  Country: US (occurrence: None)
  Receive Date: 20240716
  Receipt Date: 20240716
  Transmission Date: 20241016
  Serious: Yes (Other)
  Sender: ASTRAZENECA
  Company Number: 2020SF30605

PATIENT
  Sex: Male

DRUGS (1)
  1. BRILINTA [Suspect]
     Active Substance: TICAGRELOR
     Indication: Prophylaxis
     Route: 048
     Dates: start: 202009

REACTIONS (4)
  - Suspected COVID-19 [Unknown]
  - Cough [Unknown]
  - Malaise [Unknown]
  - Product dose omission issue [Unknown]
